FAERS Safety Report 24323879 (Version 1)
Quarter: 2024Q3

REPORT INFORMATION
  Report Type: Spontaneous
  Country: CN (occurrence: CN)
  Receive Date: 20240916
  Receipt Date: 20240916
  Transmission Date: 20241017
  Serious: Yes (Life-Threatening, Hospitalization, Other)
  Sender: BAYER
  Company Number: CN-BAYER-2024A131430

PATIENT
  Age: 60 Year
  Sex: Female
  Weight: 36.3 kg

DRUGS (5)
  1. GADOBUTROL [Suspect]
     Active Substance: GADOBUTROL
     Indication: Magnetic resonance imaging abdominal
     Dosage: 7.5 ML, ONCE
     Route: 042
     Dates: start: 20240911, end: 20240911
  2. GADOBUTROL [Suspect]
     Active Substance: GADOBUTROL
     Indication: Magnetic resonance cholangiopancreatography
  3. GADOBUTROL [Suspect]
     Active Substance: GADOBUTROL
     Indication: Hepatic cirrhosis
  4. GADOBUTROL [Suspect]
     Active Substance: GADOBUTROL
     Indication: Portal hypertension
  5. GADOBUTROL [Suspect]
     Active Substance: GADOBUTROL
     Indication: Biliary obstruction

REACTIONS (17)
  - Anaphylactic shock [Recovering/Resolving]
  - Depressed level of consciousness [Recovered/Resolved]
  - Coma [None]
  - Oxygen saturation decreased [Recovered/Resolved]
  - Blood pressure decreased [Recovering/Resolving]
  - PO2 decreased [None]
  - Eye movement disorder [None]
  - Foaming at mouth [None]
  - Muscle spasms [None]
  - Tachypnoea [Recovered/Resolved]
  - Hypopnoea [Recovered/Resolved]
  - Slow response to stimuli [None]
  - Heart rate increased [Recovered/Resolved]
  - Cyanosis [None]
  - Tachypnoea [None]
  - Blood pH decreased [None]
  - PCO2 increased [None]

NARRATIVE: CASE EVENT DATE: 20240911
